FAERS Safety Report 22527556 (Version 1)
Quarter: 2023Q2

REPORT INFORMATION
  Report Type: Spontaneous
  Country: FR (occurrence: FR)
  Receive Date: 20230606
  Receipt Date: 20230606
  Transmission Date: 20230721
  Serious: Yes (Death)
  Sender: FDA-Public Use
  Company Number: None

PATIENT
  Age: 79 Year
  Sex: Male

DRUGS (3)
  1. TEGRETOL [Suspect]
     Active Substance: CARBAMAZEPINE
     Indication: Mental disorder
     Dosage: 10 A 15 MG/KG PAR JOUR
     Route: 048
     Dates: start: 20230316, end: 20230319
  2. AMITRIPTYLINE HYDROCHLORIDE [Suspect]
     Active Substance: AMITRIPTYLINE HYDROCHLORIDE
     Indication: Mental disorder
     Dosage: 50 MG, QD
     Route: 048
     Dates: start: 20230316, end: 20230319
  3. PERICIAZINE [Suspect]
     Active Substance: PERICIAZINE
     Indication: Mental disorder
     Dosage: 1 DOSAGE FORM, QD
     Route: 048
     Dates: start: 20230316, end: 20230319

REACTIONS (1)
  - Epilepsy [Fatal]

NARRATIVE: CASE EVENT DATE: 20230319
